FAERS Safety Report 11150435 (Version 1)
Quarter: 2015Q2

REPORT INFORMATION
  Report Type: Spontaneous
  Country: FR (occurrence: FR)
  Receive Date: 20150531
  Receipt Date: 20150531
  Transmission Date: 20150821
  Serious: Yes (Hospitalization)
  Sender: FDA-Public Use
  Company Number: FR-MERCK-1505FRA009262

PATIENT
  Age: 74 Year
  Sex: Male

DRUGS (11)
  1. KARDEGIC [Suspect]
     Active Substance: ASPIRIN LYSINE
     Dosage: 75MG DAILY, 1 SACHET
     Route: 048
     Dates: start: 2010
  2. IBUPROFEN. [Suspect]
     Active Substance: IBUPROFEN
     Dosage: 1 TABLET DAILY (DOSAGE UNKNOWN)
     Route: 048
     Dates: start: 20150313, end: 20150313
  3. FUROSEMIDE. [Suspect]
     Active Substance: FUROSEMIDE
     Dosage: 40 MG, QD
     Route: 048
     Dates: start: 2014
  4. METHOTREXATE [Suspect]
     Active Substance: METHOTREXATE
     Dosage: 15 MG, QW
     Route: 048
     Dates: start: 2013, end: 20150318
  5. METFORMIN [Suspect]
     Active Substance: METFORMIN HYDROCHLORIDE
     Dosage: 500 MG, BID
     Route: 048
     Dates: start: 201502, end: 20150318
  6. SPECIAFOLDINE [Suspect]
     Active Substance: FOLIC ACID
     Dosage: 1 TABLET X 5 DAYS/7 DAYS
     Route: 048
     Dates: start: 2013
  7. VALSARTAN. [Suspect]
     Active Substance: VALSARTAN
     Dosage: 80 MG, QD
     Route: 048
     Dates: start: 2014
  8. ESOMEPRAZOLE [Suspect]
     Active Substance: ESOMEPRAZOLE
     Dosage: 40 MG, QD
     Route: 048
     Dates: start: 2010
  9. ATORVASTATIN [Suspect]
     Active Substance: ATORVASTATIN
     Dosage: 80 MG, QD
     Route: 048
     Dates: start: 2010
  10. ISOPTINE LP [Suspect]
     Active Substance: VERAPAMIL HYDROCHLORIDE
     Dosage: 1 TABLET DAILY
     Route: 048
     Dates: start: 2014, end: 20150319
  11. JANUVIA [Suspect]
     Active Substance: SITAGLIPTIN PHOSPHATE
     Dosage: 100 MG, QD
     Route: 048
     Dates: start: 201502, end: 20150318

REACTIONS (1)
  - Psoriasis [Recovering/Resolving]

NARRATIVE: CASE EVENT DATE: 201503
